FAERS Safety Report 7938505-9 (Version None)
Quarter: 2011Q4

REPORT INFORMATION
  Report Type: 
  Country: None (occurrence: None)
  Receive Date: 20111123
  Receipt Date: 20111117
  Transmission Date: 20120403
  Serious: Yes (Death)
  Sender: FDA-Public Use
  Company Number: US-CELGENEUS-163-21880-11092679

PATIENT
  Sex: Male
  Weight: 94.296 kg

DRUGS (13)
  1. RITUXAN [Suspect]
     Indication: NON-HODGKIN'S LYMPHOMA
     Dosage: 870 MILLIGRAM
     Route: 041
     Dates: start: 20110414, end: 20110505
  2. BENZONATATE [Concomitant]
     Dosage: 200 MILLIGRAM
     Route: 065
  3. LISINOPRIL [Concomitant]
     Dosage: 20 MILLIGRAM
     Route: 065
  4. REVLIMID [Suspect]
     Indication: NON-HODGKIN'S LYMPHOMA
     Dosage: 10 MILLIGRAM
     Route: 048
     Dates: start: 20110207, end: 20110307
  5. ALLOPURINOL [Concomitant]
     Dosage: 100 MILLIGRAM
     Route: 065
  6. TOPROL-XL [Concomitant]
     Dosage: 50 MILLIGRAM
     Route: 065
  7. REVLIMID [Suspect]
     Dosage: 2.5 MILLIGRAM
     Route: 048
     Dates: start: 20110426, end: 20110920
  8. DECITABINE [Suspect]
     Dosage: 45 MILLIGRAM
     Route: 065
  9. ASPIRIN [Concomitant]
     Indication: ANTICOAGULANT THERAPY
     Dosage: 325 MILLIGRAM
     Route: 065
  10. TAMSULOSIN HCL [Concomitant]
     Dosage: .4 MILLIGRAM
     Route: 065
  11. FILGRASTIM [Concomitant]
     Dosage: 480 MICROGRAM
     Route: 065
     Dates: end: 20111003
  12. REVLIMID [Suspect]
     Dosage: 5 MILLIGRAM
     Route: 048
     Dates: start: 20110322, end: 20110407
  13. HYDROCHLOROTHIAZIDE [Concomitant]
     Dosage: 12.5 MILLIGRAM
     Route: 065

REACTIONS (1)
  - ACUTE MYELOID LEUKAEMIA [None]
